FAERS Safety Report 24605901 (Version 2)
Quarter: 2025Q3

REPORT INFORMATION
  Report Type: Report from Study
  Country: CA (occurrence: CA)
  Receive Date: 20241111
  Receipt Date: 20250803
  Transmission Date: 20251021
  Serious: Yes (Other)
  Sender: ALEXION PHARMACEUTICALS
  Company Number: CA-AstraZeneca-2022A180662

PATIENT
  Age: 75 Year
  Sex: Male

DRUGS (12)
  1. CALQUENCE [Suspect]
     Active Substance: ACALABRUTINIB
     Indication: Chronic lymphocytic leukaemia
     Dosage: 100 MILLIGRAM, Q12H
     Dates: start: 20220420
  2. CALQUENCE [Suspect]
     Active Substance: ACALABRUTINIB
     Dosage: 200 MILLIGRAM, Q12H
     Dates: start: 20220421
  3. CALQUENCE [Suspect]
     Active Substance: ACALABRUTINIB
     Dosage: 100 MILLIGRAM, BID
     Dates: start: 20220421
  4. BISOPROLOL [Concomitant]
     Active Substance: BISOPROLOL
  5. ELIQUIS [Concomitant]
     Active Substance: APIXABAN
  6. FINASTERIDE [Concomitant]
     Active Substance: FINASTERIDE
  7. HUMAN IMMUNOGLOBULIN G [Concomitant]
     Active Substance: HUMAN IMMUNOGLOBULIN G
  8. INDAPAMIDE [Concomitant]
     Active Substance: INDAPAMIDE
  9. PERINDOPRIL [Concomitant]
     Active Substance: PERINDOPRIL
  10. ROPINIROLE [Concomitant]
     Active Substance: ROPINIROLE
  11. ROSUVASTATIN [Concomitant]
     Active Substance: ROSUVASTATIN
  12. TAMSULOSIN [Concomitant]
     Active Substance: TAMSULOSIN

REACTIONS (4)
  - Porocarcinoma [Unknown]
  - Heart rate increased [Not Recovered/Not Resolved]
  - Spinal operation [Unknown]
  - Incision site impaired healing [Unknown]
